FAERS Safety Report 15575819 (Version 2)
Quarter: 2018Q4

REPORT INFORMATION
  Report Type: Report from Study
  Country: IT (occurrence: IT)
  Receive Date: 20181101
  Receipt Date: 20181108
  Transmission Date: 20190205
  Serious: Yes (Hospitalization, Other)
  Sender: FDA-Public Use
  Company Number: IT-MYLANLABS-2018M1081629

PATIENT
  Age: 28 Year
  Sex: Female

DRUGS (2)
  1. FLURAZEPAM [Suspect]
     Active Substance: FLURAZEPAM\FLURAZEPAM HYDROCHLORIDE
     Indication: INSOMNIA
     Dosage: 29 DF, TOTAL
     Route: 048
     Dates: start: 20180404, end: 20180405
  2. DULOXETINE. [Suspect]
     Active Substance: DULOXETINE
     Indication: DEPRESSION
     Dosage: 27 DF, TOTAL
     Route: 048
     Dates: start: 20180404, end: 20180405

REACTIONS (3)
  - Drug abuse [Recovering/Resolving]
  - Overdose [Unknown]
  - Sopor [Recovering/Resolving]

NARRATIVE: CASE EVENT DATE: 20180404
